FAERS Safety Report 19727520 (Version 1)
Quarter: 2021Q3

REPORT INFORMATION
  Report Type: Spontaneous
  Country: US (occurrence: US)
  Receive Date: 20210819
  Receipt Date: 20210819
  Transmission Date: 20211014
  Serious: No
  Sender: FDA-Public Use
  Company Number: US-SUNOVION-2021SUN002843

PATIENT

DRUGS (1)
  1. LATUDA [Suspect]
     Active Substance: LURASIDONE HYDROCHLORIDE
     Indication: BIPOLAR II DISORDER
     Dosage: 120 MG
     Route: 048

REACTIONS (5)
  - Off label use [Unknown]
  - Weight increased [Unknown]
  - Weight decreased [Unknown]
  - Hyperacusis [Unknown]
  - Sleep disorder [Unknown]
